FAERS Safety Report 23080479 (Version 8)
Quarter: 2025Q3

REPORT INFORMATION
  Report Type: Spontaneous
  Country: JP (occurrence: JP)
  Receive Date: 20231018
  Receipt Date: 20250803
  Transmission Date: 20251020
  Serious: Yes (Disabling, Other)
  Sender: ALEXION PHARMACEUTICALS
  Company Number: 2023A233528

PATIENT
  Age: 66 Year
  Sex: Female
  Weight: 45 kg

DRUGS (34)
  1. ANDEXXA [Suspect]
     Active Substance: ANDEXANET ALFA
     Indication: Haemorrhage
     Dates: start: 20230909, end: 20230909
  2. XARELTO [Concomitant]
     Active Substance: RIVAROXABAN
     Indication: Atrial fibrillation
  3. XARELTO [Concomitant]
     Active Substance: RIVAROXABAN
  4. Heparinoid [Concomitant]
  5. ANTITHROMBIN III HUMAN [Concomitant]
     Active Substance: ANTITHROMBIN III HUMAN
  6. ANTITHROMBIN III HUMAN [Concomitant]
     Active Substance: ANTITHROMBIN III HUMAN
     Route: 065
  7. NAFAMOSTAT [Concomitant]
     Active Substance: NAFAMOSTAT
  8. NAFAMOSTAT [Concomitant]
     Active Substance: NAFAMOSTAT
  9. PROPOFOL [Concomitant]
     Active Substance: PROPOFOL
  10. PROPOFOL [Concomitant]
     Active Substance: PROPOFOL
     Route: 065
  11. FENTANYL [Concomitant]
     Active Substance: FENTANYL
  12. FENTANYL [Concomitant]
     Active Substance: FENTANYL
  13. DOBUTAMINE [Concomitant]
     Active Substance: DOBUTAMINE HYDROCHLORIDE
  14. DOBUTAMINE [Concomitant]
     Active Substance: DOBUTAMINE HYDROCHLORIDE
     Route: 065
  15. NICARDIPINE HYDROCHLORIDE [Concomitant]
     Active Substance: NICARDIPINE HYDROCHLORIDE
  16. NICARDIPINE HYDROCHLORIDE [Concomitant]
     Active Substance: NICARDIPINE HYDROCHLORIDE
  17. SIVELESTAT SODIUM [Concomitant]
     Active Substance: SIVELESTAT SODIUM
  18. TEICOPLANIN [Concomitant]
     Active Substance: TEICOPLANIN
  19. TEICOPLANIN [Concomitant]
     Active Substance: TEICOPLANIN
     Route: 065
  20. CEFAZOLIN SODIUM [Concomitant]
     Active Substance: CEFAZOLIN SODIUM
  21. CEFAZOLIN SODIUM [Concomitant]
     Active Substance: CEFAZOLIN SODIUM
     Route: 065
  22. BISOPROLOL [Concomitant]
     Active Substance: BISOPROLOL
  23. BISOPROLOL [Concomitant]
     Active Substance: BISOPROLOL
  24. LANSOPRAZOLE [Concomitant]
     Active Substance: LANSOPRAZOLE
  25. LANSOPRAZOLE [Concomitant]
     Active Substance: LANSOPRAZOLE
     Route: 065
  26. PYRIDOXAL [Concomitant]
     Active Substance: PYRIDOXAL
  27. PYRIDOXAL [Concomitant]
     Active Substance: PYRIDOXAL
     Route: 065
  28. RISPERIDONE [Concomitant]
     Active Substance: RISPERIDONE
  29. RISPERIDONE [Concomitant]
     Active Substance: RISPERIDONE
     Route: 065
  30. SEROQUEL [Concomitant]
     Active Substance: QUETIAPINE FUMARATE
  31. SEROQUEL [Concomitant]
     Active Substance: QUETIAPINE FUMARATE
     Route: 065
  32. HEPARIN SODIUM [Concomitant]
     Active Substance: HEPARIN SODIUM
     Route: 065
  33. HEPARIN SODIUM [Concomitant]
     Active Substance: HEPARIN SODIUM
     Route: 065
  34. SIVELESTAT [Concomitant]
     Active Substance: SIVELESTAT
     Route: 065

REACTIONS (2)
  - Heparin resistance [Recovering/Resolving]
  - End stage renal disease [Recovering/Resolving]

NARRATIVE: CASE EVENT DATE: 20230909
